FAERS Safety Report 25951479 (Version 1)
Quarter: 2025Q4

REPORT INFORMATION
  Report Type: Spontaneous
  Country: US (occurrence: US)
  Receive Date: 20251023
  Receipt Date: 20251023
  Transmission Date: 20260117
  Serious: Yes (Hospitalization)
  Sender: AUROBINDO
  Company Number: US-AUROBINDO-AUR-APL-2025-050921

PATIENT
  Age: 72 Year
  Sex: Male

DRUGS (3)
  1. AMPHOTERICIN B [Suspect]
     Active Substance: AMPHOTERICIN B
     Indication: Infection
     Dosage: 500 MILLIGRAM, ONCE A DAY (FOR THE NEXT 11 WEEKS)
     Route: 042
  2. MICAFUNGIN [Suspect]
     Active Substance: MICAFUNGIN SODIUM
     Indication: Infection
     Dosage: UNK
     Route: 042
  3. MICAFUNGIN [Suspect]
     Active Substance: MICAFUNGIN SODIUM
     Dosage: 100 MILLIGRAM, DAILY
     Route: 042

REACTIONS (1)
  - Drug ineffective [Unknown]
